FAERS Safety Report 19112195 (Version 2)
Quarter: 2021Q2

REPORT INFORMATION
  Report Type: Spontaneous
  Country: CN (occurrence: CN)
  Receive Date: 20210409
  Receipt Date: 20210420
  Transmission Date: 20210717
  Serious: Yes (Hospitalization)
  Sender: FDA-Public Use
  Company Number: NVSC2021CN073975

PATIENT
  Age: 85 Year
  Sex: Male

DRUGS (1)
  1. ULTIBRO [Suspect]
     Active Substance: GLYCOPYRRONIUM\INDACATEROL
     Indication: CHRONIC OBSTRUCTIVE PULMONARY DISEASE
     Dosage: 1 DF, QD (FOR ABOUT 2 YEARS)
     Route: 065

REACTIONS (3)
  - Hypoaesthesia [Not Recovered/Not Resolved]
  - Myalgia [Unknown]
  - Neuropathy peripheral [Not Recovered/Not Resolved]
